FAERS Safety Report 8059107-2 (Version None)
Quarter: 2012Q1

REPORT INFORMATION
  Report Type: 
  Country: None (occurrence: None)
  Receive Date: 20120120
  Receipt Date: 20120109
  Transmission Date: 20120608
  Serious: Yes (Other)
  Sender: FDA-Public Use
  Company Number: CA-JNJFOC-20120106792

PATIENT
  Sex: Female
  Weight: 52.2 kg

DRUGS (5)
  1. REMICADE [Suspect]
     Dosage: 37TH INFUSION
     Route: 042
     Dates: start: 20120109
  2. FOLIC ACID [Concomitant]
     Dosage: 6/7 DAYS A WEEK
     Route: 048
  3. ZOLEDRONOC ACID [Concomitant]
     Route: 042
  4. METHOTREXATE [Concomitant]
     Route: 048
  5. REMICADE [Suspect]
     Indication: RHEUMATOID ARTHRITIS
     Route: 042
     Dates: start: 20070227

REACTIONS (3)
  - VEIN DISORDER [None]
  - INFUSION RELATED REACTION [None]
  - SINUS CONGESTION [None]
